FAERS Safety Report 13929068 (Version 2)
Quarter: 2017Q4

REPORT INFORMATION
  Report Type: Spontaneous
  Country: US (occurrence: US)
  Receive Date: 20170901
  Receipt Date: 20171124
  Transmission Date: 20180320
  Serious: No
  Sender: FDA-Public Use
  Company Number: US-009507513-1708USA011342

PATIENT
  Age: 20 Year
  Sex: Female
  Weight: 97.96 kg

DRUGS (4)
  1. VARIVAX [Suspect]
     Active Substance: VARICELLA-ZOSTER VIRUS STRAIN OKA/MERCK LIVE ANTIGEN
     Indication: PROPHYLAXIS
     Dates: start: 20170818, end: 20170818
  2. STERILE DILUENT [Suspect]
     Active Substance: WATER
     Dosage: UNK
  3. VARIVAX [Suspect]
     Active Substance: VARICELLA-ZOSTER VIRUS STRAIN OKA/MERCK LIVE ANTIGEN
     Dates: start: 19990114, end: 19990114
  4. VARIVAX [Suspect]
     Active Substance: VARICELLA-ZOSTER VIRUS STRAIN OKA/MERCK LIVE ANTIGEN
     Dates: start: 20070628, end: 20070628

REACTIONS (1)
  - Therapy non-responder [Recovered/Resolved]

NARRATIVE: CASE EVENT DATE: 20170812
